FAERS Safety Report 9950502 (Version 1)
Quarter: 2014Q1

REPORT INFORMATION
  Report Type: Spontaneous
  Country: US (occurrence: US)
  Receive Date: 20140304
  Receipt Date: 20140304
  Transmission Date: 20141002
  Serious: No
  Sender: FDA-Public Use
  Company Number: US-ABBVIE-13P-163-1071973-00

PATIENT
  Age: 65 Year
  Sex: Female
  Weight: 54.48 kg

DRUGS (5)
  1. HUMIRA [Suspect]
     Indication: COLITIS ULCERATIVE
     Dates: start: 20130312, end: 20130312
  2. HUMIRA [Suspect]
     Dates: start: 20130326, end: 20130326
  3. SULFASALAZINE [Concomitant]
     Indication: COLITIS ULCERATIVE
  4. AZATHIOPRINE [Concomitant]
     Indication: COLITIS ULCERATIVE
  5. VENLAFAXINE [Concomitant]
     Indication: DEPRESSION

REACTIONS (4)
  - Abnormal faeces [Unknown]
  - Haemorrhage [Not Recovered/Not Resolved]
  - Rectal discharge [Not Recovered/Not Resolved]
  - Drug ineffective [Not Recovered/Not Resolved]
